FAERS Safety Report 9401027 (Version 2)
Quarter: 2013Q3

REPORT INFORMATION
  Report Type: Spontaneous
  Country: JP (occurrence: JP)
  Receive Date: 20130715
  Receipt Date: 20130723
  Transmission Date: 20140515
  Serious: Yes (Other)
  Sender: FDA-Public Use
  Company Number: JP-GLAXOSMITHKLINE-B0907577A

PATIENT
  Age: 84 Year
  Sex: Male

DRUGS (4)
  1. AVOLVE [Suspect]
     Indication: BENIGN PROSTATIC HYPERPLASIA
     Dosage: .5MG PER DAY
     Route: 048
     Dates: start: 201111
  2. TAMSULOSIN [Concomitant]
     Dosage: .2MG PER DAY
     Route: 048
     Dates: start: 200907
  3. BUP-4 [Concomitant]
     Route: 048
  4. UBRETID [Concomitant]
     Route: 065

REACTIONS (5)
  - Cerebral infarction [Unknown]
  - Breast pain [Recovered/Resolved]
  - Breast enlargement [Recovered/Resolved]
  - Visual field defect [Unknown]
  - Oedema peripheral [Recovering/Resolving]
